FAERS Safety Report 5168530-5 (Version None)
Quarter: 2006Q4

REPORT INFORMATION
  Report Type: 
  Country: None (occurrence: None)
  Receive Date: 20061208
  Receipt Date: 20061129
  Transmission Date: 20070319
  Serious: Yes (Other)
  Sender: FDA-Public Use
  Company Number: DE-ABBOTT-06P-062-0351891-00

PATIENT
  Sex: Female

DRUGS (3)
  1. ERGENYL CHRONO TABLETS [Suspect]
     Indication: BIPOLAR I DISORDER
     Route: 048
     Dates: start: 20061009, end: 20061023
  2. AMISULPRIDE [Concomitant]
     Indication: MANIA
     Route: 048
     Dates: start: 20061005
  3. AMISULPRIDE [Concomitant]
     Indication: PSYCHOTIC DISORDER

REACTIONS (7)
  - AMMONIA INCREASED [None]
  - BLOOD PRESSURE DECREASED [None]
  - CARDIOVASCULAR DISORDER [None]
  - DIZZINESS [None]
  - DYSARTHRIA [None]
  - FATIGUE [None]
  - LETHARGY [None]
